FAERS Safety Report 15213521 (Version 1)
Quarter: 2018Q3

REPORT INFORMATION
  Report Type: Report from Study
  Country: US (occurrence: US)
  Receive Date: 20180730
  Receipt Date: 20180730
  Transmission Date: 20181010
  Serious: Yes (Death, Other)
  Sender: FDA-Public Use
  Company Number: US-ROCHE-2158580

PATIENT

DRUGS (5)
  1. ADALIMUMAB [Suspect]
     Active Substance: ADALIMUMAB
     Indication: UVEITIS
     Route: 058
  2. AZATHIOPRINE. [Suspect]
     Active Substance: AZATHIOPRINE
     Indication: UVEITIS
     Dosage: {/=175 MG/DAY
     Route: 065
  3. CYCLOSPORINE. [Suspect]
     Active Substance: CYCLOSPORINE
     Indication: UVEITIS
     Dosage: {/=4 MG/KG/DAY
     Route: 065
  4. MYCOPHENOLATE MOFETIL. [Suspect]
     Active Substance: MYCOPHENOLATE MOFETIL
     Indication: UVEITIS
     Dosage: {/=2 G/DAY
     Route: 065
  5. METHOTREXATE. [Suspect]
     Active Substance: METHOTREXATE
     Indication: UVEITIS
     Dosage: {/=25 MG/WEEK
     Route: 065

REACTIONS (53)
  - Hepatic failure [Unknown]
  - Acute kidney injury [Unknown]
  - Cellulitis [Unknown]
  - Retinal vasculitis [Unknown]
  - Soft tissue infection [Unknown]
  - Colorectal cancer [Unknown]
  - Behcet^s syndrome [Unknown]
  - Aspergillus infection [Unknown]
  - Subcutaneous abscess [Unknown]
  - Skin cancer [Unknown]
  - Lobular breast carcinoma in situ [Unknown]
  - Device related infection [Unknown]
  - Encephalitis autoimmune [Unknown]
  - Optic neuropathy [Unknown]
  - Latent tuberculosis [Unknown]
  - Adenocarcinoma of colon [Unknown]
  - Lymphoma [Unknown]
  - Pulmonary fibrosis [Unknown]
  - Retinal neoplasm [Unknown]
  - Basal cell carcinoma [Unknown]
  - Escherichia urinary tract infection [Unknown]
  - Mycobacterium tuberculosis complex test positive [Unknown]
  - Ophthalmic herpes zoster [Unknown]
  - Peritonsillar abscess [Unknown]
  - Pancreatic carcinoma metastatic [Fatal]
  - Infection [Unknown]
  - Rectal adenocarcinoma [Unknown]
  - Optic neuritis [Unknown]
  - Pneumonia [Unknown]
  - Cytomegalovirus chorioretinitis [Unknown]
  - Cytomegalovirus infection [Unknown]
  - Pyelonephritis [Unknown]
  - Sinusitis fungal [Unknown]
  - Synovitis [Unknown]
  - Tooth abscess [Unknown]
  - Brain abscess [Fatal]
  - Tuberculosis [Unknown]
  - Lupus-like syndrome [Unknown]
  - Nephrolithiasis [Unknown]
  - Pulmonary embolism [Unknown]
  - Septic shock [Unknown]
  - Urinary tract infection [Unknown]
  - Pancreatic carcinoma [Unknown]
  - Demyelination [Unknown]
  - Chorioretinitis [Unknown]
  - Ingrowing nail [Unknown]
  - B-cell lymphoma [Fatal]
  - Opportunistic infection [Unknown]
  - Sarcoidosis [Unknown]
  - Multiple sclerosis [Unknown]
  - Blindness [Unknown]
  - Vitritis [Unknown]
  - Generalised oedema [Unknown]
